FAERS Safety Report 12394279 (Version 1)
Quarter: 2016Q2

REPORT INFORMATION
  Report Type: Spontaneous
  Country: FR (occurrence: FR)
  Receive Date: 20160523
  Receipt Date: 20160523
  Transmission Date: 20160815
  Serious: Yes (Other)
  Sender: FDA-Public Use
  Company Number: FR-TEVA-661983ISR

PATIENT
  Age: 66 Year
  Sex: Female

DRUGS (5)
  1. PROPRANOLOL TEVA [Suspect]
     Active Substance: PROPRANOLOL HYDROCHLORIDE
     Indication: TACHYCARDIA
  2. ZINC [Concomitant]
     Active Substance: ZINC\ZINC CHLORIDE
     Indication: LYME DISEASE
  3. MAGNESIUM [Concomitant]
     Active Substance: MAGNESIUM
     Indication: LYME DISEASE
  4. PROPRANOLOL TEVA [Suspect]
     Active Substance: PROPRANOLOL HYDROCHLORIDE
     Indication: HEADACHE
     Dosage: 120 MILLIGRAM DAILY;
     Dates: start: 20160512
  5. TOLEXINE [Concomitant]
     Active Substance: DOXYCYCLINE

REACTIONS (4)
  - Product substitution issue [Unknown]
  - Vertigo [Unknown]
  - Bradycardia [Unknown]
  - Coma [Unknown]

NARRATIVE: CASE EVENT DATE: 20160512
